FAERS Safety Report 19573672 (Version 9)
Quarter: 2024Q3

REPORT INFORMATION
  Report Type: Report from Study
  Country: SE (occurrence: SE)
  Receive Date: 20210717
  Receipt Date: 20240801
  Transmission Date: 20241016
  Serious: Yes (Life-Threatening, Hospitalization, Other)
  Sender: TAKEDA
  Company Number: SE-TAKEDA-2021TUS041966

PATIENT
  Age: 55 Year
  Sex: Female

DRUGS (53)
  1. TEDUGLUTIDE [Suspect]
     Active Substance: TEDUGLUTIDE
     Indication: Short-bowel syndrome
     Dosage: 1.7 MILLIGRAM, QD
     Route: 042
     Dates: start: 20191029, end: 20191030
  2. TEDUGLUTIDE [Suspect]
     Active Substance: TEDUGLUTIDE
     Indication: Short-bowel syndrome
     Dosage: 1.7 MILLIGRAM, QD
     Route: 042
     Dates: start: 20191029, end: 20191030
  3. TEDUGLUTIDE [Suspect]
     Active Substance: TEDUGLUTIDE
     Indication: Short-bowel syndrome
     Dosage: 1.7 MILLIGRAM, QD
     Route: 042
     Dates: start: 20191029, end: 20191030
  4. TEDUGLUTIDE [Suspect]
     Active Substance: TEDUGLUTIDE
     Indication: Short-bowel syndrome
     Dosage: 1.7 MILLIGRAM, QD
     Route: 042
     Dates: start: 20191029, end: 20191030
  5. TEDUGLUTIDE [Suspect]
     Active Substance: TEDUGLUTIDE
     Dosage: 2 MILLIGRAM, QD
     Route: 042
     Dates: start: 20191031, end: 20191101
  6. TEDUGLUTIDE [Suspect]
     Active Substance: TEDUGLUTIDE
     Dosage: 2 MILLIGRAM, QD
     Route: 042
     Dates: start: 20191031, end: 20191101
  7. TEDUGLUTIDE [Suspect]
     Active Substance: TEDUGLUTIDE
     Dosage: 2 MILLIGRAM, QD
     Route: 042
     Dates: start: 20191031, end: 20191101
  8. TEDUGLUTIDE [Suspect]
     Active Substance: TEDUGLUTIDE
     Dosage: 2 MILLIGRAM, QD
     Route: 042
     Dates: start: 20191031, end: 20191101
  9. TEDUGLUTIDE [Suspect]
     Active Substance: TEDUGLUTIDE
     Dosage: 2.4 MILLIGRAM, QD
     Route: 042
     Dates: start: 20191102, end: 20191103
  10. TEDUGLUTIDE [Suspect]
     Active Substance: TEDUGLUTIDE
     Dosage: 2.4 MILLIGRAM, QD
     Route: 042
     Dates: start: 20191102, end: 20191103
  11. TEDUGLUTIDE [Suspect]
     Active Substance: TEDUGLUTIDE
     Dosage: 2.4 MILLIGRAM, QD
     Route: 042
     Dates: start: 20191102, end: 20191103
  12. TEDUGLUTIDE [Suspect]
     Active Substance: TEDUGLUTIDE
     Dosage: 2.4 MILLIGRAM, QD
     Route: 042
     Dates: start: 20191102, end: 20191103
  13. TEDUGLUTIDE [Suspect]
     Active Substance: TEDUGLUTIDE
     Dosage: 2.9 MILLIGRAM, QD
     Route: 042
     Dates: start: 20191104, end: 20191105
  14. TEDUGLUTIDE [Suspect]
     Active Substance: TEDUGLUTIDE
     Dosage: 2.9 MILLIGRAM, QD
     Route: 042
     Dates: start: 20191104, end: 20191105
  15. TEDUGLUTIDE [Suspect]
     Active Substance: TEDUGLUTIDE
     Dosage: 2.9 MILLIGRAM, QD
     Route: 042
     Dates: start: 20191104, end: 20191105
  16. TEDUGLUTIDE [Suspect]
     Active Substance: TEDUGLUTIDE
     Dosage: 2.9 MILLIGRAM, QD
     Route: 042
     Dates: start: 20191104, end: 20191105
  17. TEDUGLUTIDE [Suspect]
     Active Substance: TEDUGLUTIDE
     Dosage: 3.4 MILLIGRAM, QD
     Route: 042
     Dates: start: 20191106, end: 20211021
  18. TEDUGLUTIDE [Suspect]
     Active Substance: TEDUGLUTIDE
     Dosage: 3.4 MILLIGRAM, QD
     Route: 042
     Dates: start: 20191106, end: 20211021
  19. TEDUGLUTIDE [Suspect]
     Active Substance: TEDUGLUTIDE
     Dosage: 3.4 MILLIGRAM, QD
     Route: 042
     Dates: start: 20191106, end: 20211021
  20. TEDUGLUTIDE [Suspect]
     Active Substance: TEDUGLUTIDE
     Dosage: 3.4 MILLIGRAM, QD
     Route: 042
     Dates: start: 20191106, end: 20211021
  21. TEDUGLUTIDE [Suspect]
     Active Substance: TEDUGLUTIDE
     Dosage: 1.8 MILLIGRAM, QD
     Route: 042
     Dates: start: 20211022, end: 20220204
  22. TEDUGLUTIDE [Suspect]
     Active Substance: TEDUGLUTIDE
     Dosage: 1.8 MILLIGRAM, QD
     Route: 042
     Dates: start: 20211022, end: 20220204
  23. TEDUGLUTIDE [Suspect]
     Active Substance: TEDUGLUTIDE
     Dosage: 1.8 MILLIGRAM, QD
     Route: 042
     Dates: start: 20211022, end: 20220204
  24. TEDUGLUTIDE [Suspect]
     Active Substance: TEDUGLUTIDE
     Dosage: 1.8 MILLIGRAM, QD
     Route: 042
     Dates: start: 20211022, end: 20220204
  25. TEDUGLUTIDE [Suspect]
     Active Substance: TEDUGLUTIDE
     Dosage: 1.2 MILLIGRAM, QD
     Route: 042
     Dates: start: 20220205, end: 20220215
  26. TEDUGLUTIDE [Suspect]
     Active Substance: TEDUGLUTIDE
     Dosage: 1.2 MILLIGRAM, QD
     Route: 042
     Dates: start: 20220205, end: 20220215
  27. TEDUGLUTIDE [Suspect]
     Active Substance: TEDUGLUTIDE
     Dosage: 1.2 MILLIGRAM, QD
     Route: 042
     Dates: start: 20220205, end: 20220215
  28. TEDUGLUTIDE [Suspect]
     Active Substance: TEDUGLUTIDE
     Dosage: 1.2 MILLIGRAM, QD
     Route: 042
     Dates: start: 20220205, end: 20220215
  29. TEDUGLUTIDE [Suspect]
     Active Substance: TEDUGLUTIDE
     Dosage: 1.8 MILLIGRAM, QD
     Route: 042
     Dates: start: 20220316
  30. TEDUGLUTIDE [Suspect]
     Active Substance: TEDUGLUTIDE
     Dosage: 1.8 MILLIGRAM, QD
     Route: 042
     Dates: start: 20220316
  31. TEDUGLUTIDE [Suspect]
     Active Substance: TEDUGLUTIDE
     Dosage: 1.8 MILLIGRAM, QD
     Route: 042
     Dates: start: 20220316
  32. TEDUGLUTIDE [Suspect]
     Active Substance: TEDUGLUTIDE
     Dosage: 1.8 MILLIGRAM, QD
     Route: 042
     Dates: start: 20220316
  33. VITAMIN D [Concomitant]
     Active Substance: VITAMIN D NOS
     Indication: Product substitution
     Dosage: 400 INTERNATIONAL UNIT, QD
     Route: 048
     Dates: start: 20220219, end: 20220221
  34. VITAMIN D [Concomitant]
     Active Substance: VITAMIN D NOS
     Dosage: 400 INTERNATIONAL UNIT, QD
     Route: 048
     Dates: start: 20220224
  35. ALFACALCIDOL [Concomitant]
     Active Substance: ALFACALCIDOL
     Indication: Product used for unknown indication
     Dosage: 0.25 MICROGRAM, 2/WEEK
     Route: 048
     Dates: start: 20220114, end: 20220210
  36. FUROSEMIDE [Concomitant]
     Active Substance: FUROSEMIDE
     Indication: Hypertension
     Dosage: 40 MILLIGRAM, QD
     Route: 048
     Dates: start: 20220210
  37. CILASTATIN SODIUM\IMIPENEM [Concomitant]
     Active Substance: CILASTATIN SODIUM\IMIPENEM
     Indication: Acinetobacter infection
     Dosage: 500 MILLIGRAM, BID
     Route: 042
     Dates: start: 20201214, end: 20201219
  38. LOKELMA [Concomitant]
     Active Substance: SODIUM ZIRCONIUM CYCLOSILICATE
     Indication: Blood potassium
     Dosage: 10 GRAM, BID
     Route: 048
     Dates: start: 20201208
  39. LOKELMA [Concomitant]
     Active Substance: SODIUM ZIRCONIUM CYCLOSILICATE
     Dosage: 10 GRAM, 2/WEEK
     Route: 048
     Dates: start: 20220225
  40. CIPROFLOXACIN [Concomitant]
     Active Substance: CIPROFLOXACIN
     Indication: Acinetobacter infection
     Dosage: 500 MILLIGRAM, QD
     Route: 048
     Dates: start: 20201219, end: 20201231
  41. CEFTRIAXON MIP [Concomitant]
     Indication: Acinetobacter infection
     Dosage: 2 GRAM, QD
     Route: 042
     Dates: start: 20201211, end: 20201213
  42. DOXAZOSIN MESYLATE [Concomitant]
     Active Substance: DOXAZOSIN MESYLATE
     Indication: Hypertension
     Dosage: 4.00 MILLIGRAM, QD
     Route: 048
     Dates: start: 20210526, end: 20210616
  43. CLONIDINE [Concomitant]
     Active Substance: CLONIDINE
     Indication: Hypertension
     Dosage: 300 MICROGRAM
     Route: 042
     Dates: start: 20210614, end: 20210614
  44. CLONIDINE [Concomitant]
     Active Substance: CLONIDINE
     Dosage: 75 MICROGRAM
     Route: 042
     Dates: start: 20210616, end: 20210617
  45. CLONIDINE [Concomitant]
     Active Substance: CLONIDINE
     Dosage: 75 MICROGRAM, QD
     Route: 048
     Dates: start: 20210618, end: 20210618
  46. Furix [Concomitant]
     Indication: Hypertension
     Dosage: 80 MILLIGRAM, BID
     Route: 048
     Dates: start: 20210618, end: 20210624
  47. Furix [Concomitant]
     Dosage: UNK
     Route: 042
     Dates: start: 20210613, end: 20210622
  48. Furix [Concomitant]
     Dosage: 80 MILLIGRAM, QD
     Route: 048
     Dates: start: 20201112, end: 20210614
  49. FLAGYL [Concomitant]
     Active Substance: METRONIDAZOLE\METRONIDAZOLE HYDROCHLORIDE
     Indication: Short-bowel syndrome
     Dosage: 400 MILLIGRAM, BID
     Route: 048
     Dates: start: 20210729, end: 20210809
  50. FLAGYL [Concomitant]
     Active Substance: METRONIDAZOLE\METRONIDAZOLE HYDROCHLORIDE
     Indication: Overgrowth bacterial
  51. XIFAXAN [Concomitant]
     Active Substance: RIFAXIMIN
     Indication: Gastrointestinal bacterial overgrowth
     Dosage: 550 MILLIGRAM, BID
     Route: 048
     Dates: start: 20220310, end: 20220315
  52. TRANDATE [Concomitant]
     Active Substance: LABETALOL HYDROCHLORIDE
     Indication: Hypertension
     Dosage: 5 MILLILITER
     Route: 042
     Dates: start: 20220214, end: 20220216
  53. CEFTRIAXONE [Concomitant]
     Active Substance: CEFTRIAXONE\CEFTRIAXONE SODIUM
     Indication: Endocarditis
     Dosage: 2 GRAM, QD
     Route: 042
     Dates: start: 20211222, end: 20220101

REACTIONS (7)
  - Acinetobacter infection [Recovered/Resolved]
  - Hypercalcaemia [Recovered/Resolved]
  - Hypertensive encephalopathy [Recovered/Resolved]
  - Headache [Recovered/Resolved]
  - Blood alkaline phosphatase increased [Not Recovered/Not Resolved]
  - Lymphadenitis [Not Recovered/Not Resolved]
  - Pruritus [Recovered/Resolved]

NARRATIVE: CASE EVENT DATE: 20200811
